FAERS Safety Report 7675150-7 (Version None)
Quarter: 2011Q3

REPORT INFORMATION
  Report Type: 
  Country: None (occurrence: None)
  Receive Date: 20110810
  Receipt Date: 20110729
  Transmission Date: 20111222
  Serious: Yes (Hospitalization, Other)
  Sender: FDA-Public Use
  Company Number: CA-JNJFOC-20110503873

PATIENT
  Sex: Male
  Weight: 51.2 kg

DRUGS (1)
  1. REMICADE [Suspect]
     Indication: PRODUCT USED FOR UNKNOWN INDICATION
     Route: 042
     Dates: start: 20110416, end: 20110429

REACTIONS (3)
  - HYPERTHERMIA [None]
  - NAUSEA [None]
  - MALAISE [None]
